FAERS Safety Report 6211851-5 (Version None)
Quarter: 2009Q2

REPORT INFORMATION
  Report Type: 
  Country: None (occurrence: None)
  Receive Date: 20090602
  Receipt Date: 20090521
  Transmission Date: 20091009
  Serious: Yes (Other)
  Sender: FDA-Public Use
  Company Number: IN-PFIZER INC-2009219986

PATIENT
  Age: 38 Year

DRUGS (1)
  1. SILDENAFIL CITRATE [Suspect]
     Indication: ERECTILE DYSFUNCTION
     Dosage: FREQUENCY: UNKN, UNKN;
     Route: 048

REACTIONS (2)
  - COUGH [None]
  - HAEMOPTYSIS [None]
